FAERS Safety Report 9079228 (Version 1)
Quarter: 2013Q1

REPORT INFORMATION
  Report Type: Spontaneous
  Country: US (occurrence: US)
  Receive Date: 20130215
  Receipt Date: 20130215
  Transmission Date: 20140127
  Serious: No
  Sender: FDA-Public Use
  Company Number: US-009507513-1302USA006442

PATIENT
  Sex: Male

DRUGS (2)
  1. ZOCOR [Suspect]
     Indication: BLOOD CHOLESTEROL
     Dosage: UNK
     Route: 048
     Dates: start: 200707, end: 201002
  2. ZOCOR [Suspect]
     Indication: BLOOD CHOLESTEROL
     Dosage: UNK
     Dates: start: 200707, end: 201002

REACTIONS (2)
  - Muscle injury [Unknown]
  - Muscular weakness [Unknown]
